FAERS Safety Report 8407514-8 (Version None)
Quarter: 2012Q2

REPORT INFORMATION
  Report Type: 
  Country: None (occurrence: None)
  Receive Date: 20120604
  Receipt Date: 20120524
  Transmission Date: 20120825
  Serious: Yes (Other)
  Sender: FDA-Public Use
  Company Number: AX-ASTRAZENECA-2011SE50506

PATIENT
  Age: 35 Year
  Sex: Male
  Weight: 72.6 kg

DRUGS (5)
  1. SEROQUEL [Suspect]
     Indication: BIPOLAR DISORDER
     Route: 048
  2. PAIN MEDICATION [Concomitant]
  3. SEROQUEL [Suspect]
     Route: 048
  4. SEROQUEL [Suspect]
     Route: 048
  5. ANTIBIOTIC [Concomitant]

REACTIONS (3)
  - PANCREATITIS ACUTE [None]
  - ADVERSE DRUG REACTION [None]
  - DYSKINESIA [None]
